FAERS Safety Report 11896071 (Version 1)
Quarter: 2016Q1

REPORT INFORMATION
  Report Type: Spontaneous
  Country: US (occurrence: US)
  Receive Date: 20160107
  Receipt Date: 20160107
  Transmission Date: 20160526
  Serious: No
  Sender: FDA-Public Use
  Company Number: US-PFIZER INC-2015457186

PATIENT
  Age: 67 Year
  Sex: Male

DRUGS (5)
  1. AMBIEN [Concomitant]
     Active Substance: ZOLPIDEM TARTRATE
     Indication: SLEEP DISORDER
     Dosage: 5 MG, 1X/DAY (1 TABLET BY MOUTH AT BEDTIME)
     Route: 048
     Dates: start: 20151016
  2. NUCYNTA [Concomitant]
     Active Substance: TAPENTADOL HYDROCHLORIDE
     Dosage: 100 MG, 4X/DAY(ONE TABLET EVERY 6 HOURS )
     Route: 048
     Dates: start: 20151016
  3. LYRICA [Suspect]
     Active Substance: PREGABALIN
     Indication: COMPLEX REGIONAL PAIN SYNDROME
     Dosage: 200 MG, 3X/DAY
     Route: 048
  4. NUCYNTA [Concomitant]
     Active Substance: TAPENTADOL HYDROCHLORIDE
     Dosage: 200 MG, UNK (EVERY 12 HOURS)
     Route: 048
     Dates: start: 20151110
  5. NORTRIPTYLINE HCL [Concomitant]
     Active Substance: NORTRIPTYLINE HYDROCHLORIDE
     Dosage: 10 MG, 2X/DAY
     Route: 048
     Dates: start: 20151110

REACTIONS (6)
  - Constipation [Unknown]
  - Joint stiffness [Unknown]
  - Dry mouth [Unknown]
  - Product use issue [Unknown]
  - Anxiety [Unknown]
  - Muscle spasms [Unknown]
